FAERS Safety Report 7911326-9 (Version None)
Quarter: 2011Q4

REPORT INFORMATION
  Report Type: 
  Country: None (occurrence: None)
  Receive Date: 20111114
  Receipt Date: 20111102
  Transmission Date: 20120403
  Serious: Yes (Other)
  Sender: FDA-Public Use
  Company Number: US-ELI_LILLY_AND_COMPANY-US201104001434

PATIENT
  Sex: Male
  Weight: 50.113 kg

DRUGS (3)
  1. VERAPAMIL [Concomitant]
     Dosage: UNK, UNKNOWN
  2. PROPRANOLOL [Concomitant]
     Dosage: UNK, UNKNOWN
  3. HUMATROPE [Suspect]
     Indication: NOONAN SYNDROME
     Dosage: 4 CLICKS OF 1.6 MG, QD
     Route: 058
     Dates: start: 20061130, end: 20080501

REACTIONS (2)
  - DRUG DOSE OMISSION [None]
  - HYPERTROPHIC CARDIOMYOPATHY [None]
